FAERS Safety Report 25920445 (Version 1)
Quarter: 2025Q4

REPORT INFORMATION
  Report Type: Spontaneous
  Country: US (occurrence: US)
  Receive Date: 20251014
  Receipt Date: 20251014
  Transmission Date: 20260117
  Serious: No
  Sender: INSUD PHARMA
  Company Number: US-INSUD PHARMA-2510US08257

PATIENT

DRUGS (1)
  1. SLYND [Suspect]
     Active Substance: DROSPIRENONE
     Indication: Uterine leiomyoma
     Dosage: UNK
     Route: 048
     Dates: start: 20250827

REACTIONS (2)
  - Heavy menstrual bleeding [Not Recovered/Not Resolved]
  - Product prescribing issue [Unknown]

NARRATIVE: CASE EVENT DATE: 20250801
